FAERS Safety Report 7700089-8 (Version None)
Quarter: 2011Q3

REPORT INFORMATION
  Report Type: 
  Country: None (occurrence: None)
  Receive Date: 20110822
  Receipt Date: 20110815
  Transmission Date: 20111222
  Serious: Yes (Hospitalization)
  Sender: FDA-Public Use
  Company Number: US-ABBOTT-11P-163-0846659-00

PATIENT
  Sex: Female
  Weight: 61.29 kg

DRUGS (7)
  1. NAPROSYN [Concomitant]
     Indication: RHEUMATOID ARTHRITIS
  2. CYMBALTA [Concomitant]
     Indication: PAIN
  3. HUMIRA [Suspect]
     Indication: RHEUMATOID ARTHRITIS
     Dates: start: 20090101
  4. PLAQUENIL [Concomitant]
     Indication: RHEUMATOID ARTHRITIS
  5. CARDIZEM [Concomitant]
     Indication: HEART RATE IRREGULAR
  6. SPIRIVA [Concomitant]
     Indication: HYPERSENSITIVITY
  7. REQUIP [Concomitant]
     Indication: RESTLESS LEGS SYNDROME

REACTIONS (7)
  - INJECTION SITE PAIN [None]
  - RHEUMATOID ARTHRITIS [None]
  - INJECTION SITE HAEMATOMA [None]
  - INCORRECT STORAGE OF DRUG [None]
  - POOR QUALITY DRUG ADMINISTERED [None]
  - SPLENIC RUPTURE [None]
  - JOINT STIFFNESS [None]
